FAERS Safety Report 7920207-6 (Version None)
Quarter: 2011Q4

REPORT INFORMATION
  Report Type: 
  Country: None (occurrence: None)
  Receive Date: 20111117
  Receipt Date: 20111110
  Transmission Date: 20120403
  Serious: Yes (Other)
  Sender: FDA-Public Use
  Company Number: GB-PFIZER INC-2011276450

PATIENT
  Age: 27 Year
  Sex: Male

DRUGS (8)
  1. CEPHALEXIN [Suspect]
     Indication: URETHRITIS
     Dosage: 500 MG, 3X/DAY
     Route: 048
  2. METRONIDAZOLE [Concomitant]
  3. MINIMS CHLORAMPHENICOL [Concomitant]
  4. FLUCLOXACILLIN [Concomitant]
  5. PROCHLORPERAZINE [Concomitant]
  6. LACTULOSE [Concomitant]
  7. AZITHROMYCIN [Suspect]
     Indication: URETHRITIS
     Dosage: 1000 MG, 3X/DAY
     Route: 048
  8. ACETAMINOPHEN AND CODEINE PHOSPHATE [Concomitant]

REACTIONS (2)
  - ERECTILE DYSFUNCTION [None]
  - LOSS OF LIBIDO [None]
